FAERS Safety Report 10635002 (Version 3)
Quarter: 2015Q1

REPORT INFORMATION
  Report Type: Spontaneous
  Country: CZ (occurrence: CZ)
  Receive Date: 20141205
  Receipt Date: 20150202
  Transmission Date: 20150720
  Serious: Yes (Hospitalization)
  Sender: FDA-Public Use
  Company Number: CZ-SA-2014SA113201

PATIENT
  Age: 30 Year
  Sex: Male

DRUGS (14)
  1. LEMTRADA [Suspect]
     Active Substance: ALEMTUZUMAB
     Indication: MULTIPLE SCLEROSIS
     Route: 065
     Dates: start: 20140811, end: 20140815
  2. NOVALGIN [Concomitant]
     Active Substance: METAMIZOLE SODIUM
     Route: 042
     Dates: start: 2014
  3. VITAMIN K [Concomitant]
     Active Substance: PHYTONADIONE
     Dosage: VIGANTOL GTT
     Route: 048
     Dates: start: 2014
  4. ITOPRIDE [Concomitant]
     Active Substance: ITOPRIDE
     Route: 048
     Dates: start: 2014
  5. DEGAN [Concomitant]
     Active Substance: METOCLOPRAMIDE HYDROCHLORIDE
     Route: 042
     Dates: start: 2014
  6. KALNORMIN [Concomitant]
     Active Substance: POTASSIUM CHLORIDE
     Dates: start: 2014
  7. FLECTOR [Concomitant]
     Active Substance: DICLOFENAC EPOLAMINE
     Indication: PROPHYLAXIS
     Dosage: LOCAL THERAPY ON KNEES, ANKLES, SHOULDERS
     Dates: start: 2014
  8. AKTIFERRIN [Concomitant]
     Active Substance: FERROUS SULFATE\SERINE
     Dates: start: 2014
  9. DIAZEPAM. [Concomitant]
     Active Substance: DIAZEPAM
     Route: 048
     Dates: start: 2014
  10. PARACETAMOL [Concomitant]
     Active Substance: ACETAMINOPHEN
     Route: 042
     Dates: start: 2014
  11. NEODOLPASSE [Concomitant]
     Route: 042
     Dates: start: 2014
  12. ACIDUM FOLICUM [Concomitant]
     Active Substance: FOLIC ACID
     Route: 048
     Dates: start: 2014
  13. NADROPARIN [Concomitant]
     Active Substance: NADROPARIN
     Route: 058
     Dates: start: 2014
  14. OMEPRAZOLE. [Concomitant]
     Active Substance: OMEPRAZOLE
     Route: 048
     Dates: start: 2014

REACTIONS (1)
  - Listeriosis [Recovered/Resolved]

NARRATIVE: CASE EVENT DATE: 20140819
